FAERS Safety Report 23096173 (Version 1)
Quarter: 2023Q4

REPORT INFORMATION
  Report Type: Spontaneous
  Country: CN (occurrence: CN)
  Receive Date: 20231023
  Receipt Date: 20231023
  Transmission Date: 20240110
  Serious: Yes (Other)
  Sender: FDA-Public Use
  Company Number: CN-TAKEDA-2023TUS101967

PATIENT
  Age: 27 Year
  Sex: Male

DRUGS (4)
  1. ENTYVIO [Suspect]
     Active Substance: VEDOLIZUMAB
     Indication: Bruton^s agammaglobulinaemia
     Dosage: UNK
     Route: 065
  2. ENTYVIO [Suspect]
     Active Substance: VEDOLIZUMAB
     Indication: Autoimmune enteropathy
  3. ENTYVIO [Suspect]
     Active Substance: VEDOLIZUMAB
     Indication: Diarrhoea
  4. HUMAN IMMUNOGLOBULIN G [Suspect]
     Active Substance: HUMAN IMMUNOGLOBULIN G
     Indication: Diarrhoea
     Dosage: 20 GRAM, Q4WEEKS
     Route: 042

REACTIONS (3)
  - Pneumonitis [Unknown]
  - Treatment failure [Unknown]
  - Product use in unapproved indication [Unknown]
